FAERS Safety Report 7232496 (Version 19)
Quarter: 2014Q1

REPORT INFORMATION
  Report Type: Spontaneous
  Country: US (occurrence: US)
  Receive Date: 20091229
  Receipt Date: 20140304
  Transmission Date: 20141002
  Serious: Yes (Death, Hospitalization, Other)
  Sender: FDA-Public Use
  Company Number: PHEH2009US18000

PATIENT
  Age: 51 Year
  Sex: Female

DRUGS (57)
  1. AREDIA [Suspect]
     Route: 042
     Dates: start: 200405, end: 200506
  2. ZOMETA [Suspect]
     Indication: BREAST CANCER
     Dates: start: 200508, end: 200606
  3. XELODA [Suspect]
  4. COUMADINE [Concomitant]
  5. LASIX [Concomitant]
  6. POTASSIUM [Concomitant]
  7. PROVIGIL [Concomitant]
  8. PROTONIX ^PHARMACIA^ [Concomitant]
  9. SYNTHROID [Concomitant]
  10. STOOL SOFTENER [Concomitant]
  11. COLACE [Concomitant]
  12. TAMOXIFEN [Concomitant]
  13. FASLODEX [Concomitant]
  14. TAXOTERE [Concomitant]
  15. NAVELBINE [Concomitant]
  16. AVASTIN [Concomitant]
  17. DURAGESIC [Concomitant]
     Dosage: 1 DF, Q72H
     Route: 061
  18. PERCOCET [Concomitant]
  19. SENOKOT [Concomitant]
  20. CEPHALEXIN [Concomitant]
     Dosage: 500 MG, Q6H
     Route: 048
  21. ROFECOXIB [Concomitant]
     Dosage: 2 DF, QD
     Route: 048
  22. DIPHENHYDRAMINE HYDROCHLORIDE [Concomitant]
     Dosage: 25 MG, Q6H PRN
     Route: 048
  23. DROPERIDOL [Concomitant]
  24. ENOXAPARIN [Concomitant]
     Dosage: 80 MG, Q12H
     Route: 058
  25. PROTONIX [Concomitant]
     Dosage: 40 MG, BID
  26. REGLAN                                  /USA/ [Concomitant]
     Route: 017
  27. VICODIN [Concomitant]
  28. VALIUM [Concomitant]
  29. COMPAZINE [Concomitant]
  30. TIGAN [Concomitant]
  31. NORMODYNE [Concomitant]
  32. TAXOL [Concomitant]
  33. ARANESP [Concomitant]
  34. AMBIEN [Concomitant]
  35. CARBOPLATIN [Concomitant]
  36. GEMZAR [Concomitant]
  37. NEURONTIN [Concomitant]
     Dosage: 100 MG, QHS
     Route: 048
  38. RELISTOR [Concomitant]
     Route: 058
  39. DILAUDID [Concomitant]
  40. XANAX [Concomitant]
     Dosage: 1 DF, Q6H
     Route: 048
  41. LAMICTAL [Concomitant]
     Dosage: 3 DF, BID
     Route: 048
  42. ATIVAN [Concomitant]
     Dosage: 0.5 MG, Q4H, PRN
     Route: 048
  43. FEMARA [Concomitant]
  44. MIRALAX [Concomitant]
     Dosage: 17 G, PRN
     Route: 048
  45. ZOFRAN [Concomitant]
     Dosage: 4 MG, QD
     Route: 048
  46. HALDOL [Concomitant]
     Dosage: 0.5 MG, UNK
     Route: 048
  47. METHOTREXATE [Concomitant]
  48. LYRICA [Concomitant]
  49. KEFLEX [Concomitant]
  50. Z-PAK [Concomitant]
  51. NEXIUM [Concomitant]
  52. SALAGEN [Concomitant]
     Dosage: 5 MG, TID
     Route: 048
  53. AMOXICILLIN [Concomitant]
  54. VINCRISTINE [Concomitant]
  55. VELBAN [Concomitant]
  56. CYTOXAN [Concomitant]
  57. DOXIL [Concomitant]

REACTIONS (95)
  - Death [Fatal]
  - Back pain [Unknown]
  - Osteonecrosis of jaw [Unknown]
  - Pain [Unknown]
  - Infection [Unknown]
  - Deformity [Unknown]
  - Constipation [Unknown]
  - Dyspnoea [Unknown]
  - White blood cell count decreased [Unknown]
  - Anaemia [Unknown]
  - Oesophagitis [Unknown]
  - Chest pain [Unknown]
  - Joint effusion [Unknown]
  - Bursitis [Unknown]
  - Arthralgia [Recovered/Resolved]
  - Fatigue [Unknown]
  - Stomatitis [Unknown]
  - Acetabulum fracture [Unknown]
  - Musculoskeletal pain [Recovering/Resolving]
  - Herpes zoster [Unknown]
  - Spinal pain [Unknown]
  - Neuritis [Unknown]
  - Pleural effusion [Recovered/Resolved]
  - Thrombocytopenia [Unknown]
  - Hypomagnesaemia [Unknown]
  - Hypokalaemia [Unknown]
  - Pruritus [Unknown]
  - Epistaxis [Unknown]
  - Dry mouth [Unknown]
  - Dyspepsia [Unknown]
  - Decreased appetite [Unknown]
  - Nausea [Unknown]
  - Vomiting [Unknown]
  - Temperature intolerance [Unknown]
  - Radiculitis brachial [Unknown]
  - Radiculopathy [Unknown]
  - Pulmonary embolism [Recovered/Resolved]
  - Neuropathy peripheral [Unknown]
  - Hypoaesthesia [Unknown]
  - Varicella [Recovered/Resolved]
  - Synovial cyst [Unknown]
  - Metabolic disorder [Unknown]
  - Polyneuropathy [Unknown]
  - Spinal osteoarthritis [Unknown]
  - Abdominal pain [Unknown]
  - Coagulopathy [Unknown]
  - Respiratory failure [Unknown]
  - Pathological fracture [Unknown]
  - Spondylolisthesis [Unknown]
  - Dysphagia [Unknown]
  - Confusional state [Unknown]
  - Hypertension [Unknown]
  - Insomnia [Unknown]
  - Metastases to central nervous system [Unknown]
  - Convulsion [Unknown]
  - Lung infiltration [Recovered/Resolved]
  - Pneumonia [Unknown]
  - Pleural fibrosis [Unknown]
  - Hepatic lesion [Unknown]
  - Haemangioma [Unknown]
  - Seborrhoeic keratosis [Unknown]
  - Actinic keratosis [Unknown]
  - Onychomycosis [Unknown]
  - Gastrooesophageal reflux disease [Unknown]
  - Hypercholesterolaemia [Unknown]
  - Upper respiratory tract infection [Unknown]
  - Oropharyngeal pain [Unknown]
  - Laryngitis [Unknown]
  - Skin lesion [Unknown]
  - Small intestinal obstruction [Unknown]
  - Dry eye [Unknown]
  - Cataract [Unknown]
  - Sinusitis [Unknown]
  - Cardiomyopathy [Unknown]
  - Bronchitis [Unknown]
  - Leukopenia [Unknown]
  - Muscular weakness [Unknown]
  - Spinal cord compression [Unknown]
  - Respiratory distress [Unknown]
  - Bone lesion [Unknown]
  - Nasal congestion [Unknown]
  - Lacrimation increased [Unknown]
  - Contusion [Unknown]
  - Anxiety [Unknown]
  - Sedation [Unknown]
  - Hyperthyroidism [Unknown]
  - Hypercoagulation [Unknown]
  - Lumbar radiculopathy [Unknown]
  - Skin papilloma [Unknown]
  - Metastases to bone [Unknown]
  - Sinus disorder [Unknown]
  - Hepatic steatosis [Unknown]
  - Pulmonary mass [Unknown]
  - Haemoptysis [Unknown]
  - Vaginal haemorrhage [Unknown]
